APPROVED DRUG PRODUCT: PROPOXYPHENE HYDROCHLORIDE
Active Ingredient: PROPOXYPHENE HYDROCHLORIDE
Strength: 65MG
Dosage Form/Route: CAPSULE;ORAL
Application: A040569 | Product #001
Applicant: MYLAN PHARMACEUTICALS INC
Approved: Dec 16, 2004 | RLD: No | RS: No | Type: DISCN